FAERS Safety Report 10151844 (Version 1)
Quarter: 2014Q2

REPORT INFORMATION
  Report Type: Spontaneous
  Country: JP (occurrence: JP)
  Receive Date: 20140505
  Receipt Date: 20140505
  Transmission Date: 20141212
  Serious: Yes (Other)
  Sender: FDA-Public Use
  Company Number: JP-ACCORD-023469

PATIENT
  Age: 62 Year
  Sex: Female

DRUGS (2)
  1. PACLITAXEL/PACLITAXEL LIPOSOME [Suspect]
     Indication: METASTASES TO LUNG
  2. BEVACIZUMAB [Suspect]
     Indication: METASTASES TO LUNG

REACTIONS (2)
  - Pneumothorax [Recovered/Resolved]
  - Disease progression [None]
